FAERS Safety Report 25206434 (Version 1)
Quarter: 2025Q2

REPORT INFORMATION
  Report Type: Report from Study
  Country: CA (occurrence: CA)
  Receive Date: 20250417
  Receipt Date: 20250417
  Transmission Date: 20250717
  Serious: Yes (Other)
  Sender: ABBVIE
  Company Number: CA-ABBVIE-6229049

PATIENT
  Sex: Female

DRUGS (1)
  1. SKYRIZI [Suspect]
     Active Substance: RISANKIZUMAB-RZAA
     Indication: Crohn^s disease
     Dosage: EXP: 2026-JL-5
     Route: 058

REACTIONS (4)
  - Macular degeneration [Unknown]
  - Injection site papule [Recovering/Resolving]
  - Injection site haemorrhage [Recovering/Resolving]
  - Glaucoma [Unknown]
